FAERS Safety Report 5311210-3 (Version None)
Quarter: 2007Q2

REPORT INFORMATION
  Report Type: 
  Country: None (occurrence: None)
  Receive Date: 20070430
  Receipt Date: 20070420
  Transmission Date: 20071010
  Serious: Yes (Other)
  Sender: FDA-Public Use
  Company Number: AU-AMGEN-KDL191382

PATIENT
  Age: 75 Year
  Sex: Male

DRUGS (12)
  1. ARANESP [Suspect]
     Indication: RENAL FAILURE CHRONIC
     Dates: start: 20050401
  2. FOLATE SODIUM [Concomitant]
  3. METOPROLOL SUCCINATE [Concomitant]
  4. NORVASC [Concomitant]
  5. CALCIUM CARBONATE [Concomitant]
  6. ACETYLSALICYLIC ACID SRT [Concomitant]
  7. MOMETASONE FUROATE [Concomitant]
     Route: 061
  8. FERRUM H [Concomitant]
     Route: 042
  9. CALCITRIOL [Concomitant]
     Dates: start: 20050714
  10. CALCIUM CARBONATE [Concomitant]
     Route: 048
     Dates: start: 20050714
  11. GLICLAZIDE [Concomitant]
  12. VITAMINS [Concomitant]

REACTIONS (2)
  - DRUG INEFFECTIVE [None]
  - POLYP [None]
